FAERS Safety Report 15405412 (Version 1)
Quarter: 2018Q3

REPORT INFORMATION
  Report Type: Spontaneous
  Country: US (occurrence: US)
  Receive Date: 20180920
  Receipt Date: 20180920
  Transmission Date: 20181010
  Serious: No
  Sender: FDA-Public Use
  Company Number: US-TEVA-806848USA

PATIENT
  Sex: Female

DRUGS (1)
  1. CLONAZEPAM. [Suspect]
     Active Substance: CLONAZEPAM
     Route: 048

REACTIONS (7)
  - Euphoric mood [Unknown]
  - Product solubility abnormal [Unknown]
  - Product substitution issue [Unknown]
  - Drug effect faster than expected [Unknown]
  - Fear [Unknown]
  - Disorientation [Unknown]
  - Product taste abnormal [Unknown]
